FAERS Safety Report 4788186-0 (Version None)
Quarter: 2005Q4

REPORT INFORMATION
  Report Type: 
  Country: None (occurrence: None)
  Receive Date: 20051003
  Receipt Date: 20050617
  Transmission Date: 20060501
  Serious: Yes (Hospitalization)
  Sender: FDA-Public Use
  Company Number: T02-USA-01673-01

PATIENT
  Age: 71 Year
  Sex: Female

DRUGS (14)
  1. MEMANTINE HCL [Suspect]
     Indication: OPEN ANGLE GLAUCOMA
     Dosage: 5 MG QD PO
     Route: 048
     Dates: start: 20020715, end: 20020717
  2. LIPITOR [Suspect]
     Indication: HYPERLIPIDAEMIA
  3. EVISTA [Suspect]
     Indication: OSTEOPOROSIS
     Dates: start: 20020715
  4. LISINOPRIL [Concomitant]
  5. TRIAMTERENE HCL (TRIAMTERENE) [Concomitant]
  6. CALCIUM CARBONATE [Concomitant]
  7. MULTIVITAMIN SILVER [Concomitant]
  8. PANCREASE (PANCRELIPASE) [Concomitant]
  9. DIGOXIN [Concomitant]
  10. CENTRUM [Concomitant]
  11. AMBIEN [Concomitant]
  12. OXYCODONE HCL [Concomitant]
  13. LOPRESSOR [Concomitant]
  14. PROTONIX [Concomitant]

REACTIONS (3)
  - PANCREATIC CYST [None]
  - PANCREATITIS [None]
  - PYREXIA [None]
